FAERS Safety Report 14116182 (Version 3)
Quarter: 2021Q3

REPORT INFORMATION
  Report Type: Spontaneous
  Country: DE (occurrence: DE)
  Receive Date: 20171023
  Receipt Date: 20210924
  Transmission Date: 20211014
  Serious: Yes (Other)
  Sender: FDA-Public Use
  Company Number: DE-TEVA-816726GER

PATIENT
  Sex: Male

DRUGS (3)
  1. XARELTO [Suspect]
     Active Substance: RIVAROXABAN
     Dosage: 20 MG
     Route: 065
  2. FINASTERID [Suspect]
     Active Substance: FINASTERIDE
     Dosage: 1 MG
     Route: 065
     Dates: start: 2013
  3. IRBESARTAN 300MG [Suspect]
     Active Substance: IRBESARTAN
     Dosage: 300 MG
     Route: 065

REACTIONS (2)
  - Gamma-glutamyltransferase increased [Unknown]
  - Mineral metabolism disorder [Unknown]
